FAERS Safety Report 9768611 (Version 1)
Quarter: 2013Q4

REPORT INFORMATION
  Report Type: Report from Study
  Country: US (occurrence: US)
  Receive Date: 20131218
  Receipt Date: 20131218
  Transmission Date: 20140711
  Serious: Yes (Hospitalization)
  Sender: FDA-Public Use
  Company Number: US-ROCHE-1316226

PATIENT
  Age: 54 Year
  Sex: Female

DRUGS (29)
  1. XOLAIR [Suspect]
     Indication: ASTHMA
     Route: 065
  2. METFORMIN [Concomitant]
     Route: 065
  3. LOSARTAN [Concomitant]
     Route: 048
  4. AMLODIPINE [Concomitant]
     Route: 048
  5. FENOFIBRATE [Concomitant]
     Route: 048
  6. ASPIRIN [Concomitant]
     Route: 048
  7. ASPIRIN [Concomitant]
     Route: 065
  8. CITALOPRAM [Concomitant]
     Route: 048
  9. HUMALOG [Concomitant]
     Dosage: INSULIN SLIDING SCALE AC AND  BEDTIME
     Route: 058
  10. GLIPIZIDE [Concomitant]
     Dosage: AC-BREAKFAST
     Route: 048
  11. XANAX [Concomitant]
     Dosage: BID PRN ANXIETY
     Route: 048
  12. AMBIEN [Concomitant]
     Dosage: AT BEDTIME PRN FOR SLEEP
     Route: 048
  13. LANTUS [Concomitant]
     Dosage: BID
     Route: 058
  14. SYMBICORT [Concomitant]
     Dosage: 2 PUFFS BID
     Route: 055
  15. VENTOLIN HFA [Concomitant]
     Dosage: 2 PUFFS Q6HOURS FOR WHEEZING
     Route: 055
  16. MEDROL DOSEPAK [Concomitant]
     Route: 048
  17. VENTOLIN [Concomitant]
  18. XOPENEX HFA [Concomitant]
  19. ZOLPIDEM [Concomitant]
     Route: 065
  20. INSULIN [Concomitant]
  21. CRESTOR [Concomitant]
     Route: 065
  22. GABAPENTIN [Concomitant]
     Route: 065
  23. ACTOS [Concomitant]
     Route: 065
  24. ULTRAM [Concomitant]
     Route: 065
  25. ALPRAZOLAM [Concomitant]
     Route: 065
  26. FLEXERIL (UNITED STATES) [Concomitant]
     Route: 065
  27. ZOFRAN [Concomitant]
     Route: 065
  28. JANUMET [Concomitant]
  29. PRAVASTATIN [Concomitant]

REACTIONS (35)
  - Chronic obstructive pulmonary disease [Unknown]
  - Back pain [Unknown]
  - Urinary tract infection [Unknown]
  - Pyrexia [Unknown]
  - Abdominal pain [Recovered/Resolved]
  - Blood glucose increased [Unknown]
  - Cholelithiasis [Unknown]
  - Asthenia [Unknown]
  - Lethargy [Unknown]
  - Neuropathy peripheral [Unknown]
  - Anaemia [Unknown]
  - Hepatic steatosis [Unknown]
  - Back pain [Unknown]
  - Dyspnoea exertional [Unknown]
  - Cough [Unknown]
  - Chest pain [Unknown]
  - Hypoglycaemia [Unknown]
  - Nephropathy [Unknown]
  - Liver function test abnormal [Unknown]
  - Wheezing [Unknown]
  - Increased upper airway secretion [Unknown]
  - Mean cell volume decreased [Unknown]
  - Emotional distress [Unknown]
  - Pyelonephritis [Unknown]
  - Dysuria [Unknown]
  - Flank pain [Unknown]
  - Renal hypertrophy [Unknown]
  - Thrombocytopenia [Unknown]
  - Gastritis [Unknown]
  - Gastric ulcer [Unknown]
  - Proteinuria [Unknown]
  - Dyspnoea [Unknown]
  - Urine analysis abnormal [Unknown]
  - White blood cell count increased [Unknown]
  - Haemoglobin decreased [Unknown]
